FAERS Safety Report 8580426-5 (Version None)
Quarter: 2012Q3

REPORT INFORMATION
  Report Type: 
  Country: None (occurrence: None)
  Receive Date: 20120808
  Receipt Date: 20120726
  Transmission Date: 20120928
  Serious: No
  Sender: FDA-Public Use
  Company Number: US-ASTRAZENECA-2012SE51199

PATIENT
  Age: 53 Year
  Sex: Female

DRUGS (2)
  1. NEXIUM [Suspect]
     Route: 048
  2. NEXIUM [Suspect]
     Route: 048

REACTIONS (10)
  - MALAISE [None]
  - TENDONITIS [None]
  - BACK PAIN [None]
  - DRUG DOSE OMISSION [None]
  - DYSPEPSIA [None]
  - PAIN [None]
  - OSTEOPENIA [None]
  - CHEST PAIN [None]
  - ARTHRITIS [None]
  - NECK PAIN [None]
